FAERS Safety Report 8501862-9 (Version None)
Quarter: 2012Q3

REPORT INFORMATION
  Report Type: 
  Country: None (occurrence: None)
  Receive Date: 20120711
  Receipt Date: 20120705
  Transmission Date: 20120928
  Serious: Yes (Hospitalization, Other)
  Sender: FDA-Public Use
  Company Number: PHHY2012MX058386

PATIENT
  Age: 52 Year
  Sex: Female

DRUGS (1)
  1. DIOVAN HCT [Suspect]
     Indication: HYPERTENSION
     Dosage: 1 DF, DAILY(VALS 160 MG, HYDR 12.5 MG)
     Dates: start: 20080101

REACTIONS (2)
  - CARDIO-RESPIRATORY ARREST [None]
  - BRAIN HYPOXIA [None]
